FAERS Safety Report 8595586-X (Version None)
Quarter: 2012Q3

REPORT INFORMATION
  Report Type: 
  Country: None (occurrence: None)
  Receive Date: 20120801
  Receipt Date: 20120717
  Transmission Date: 20120928
  Serious: Yes (Other)
  Sender: FDA-Public Use
  Company Number: E2B_00000276

PATIENT
  Age: 59 Year
  Sex: Female
  Weight: 87.0906 kg

DRUGS (3)
  1. ASPIRIN [Concomitant]
  2. AMLODIPINE BESYLATE [Suspect]
     Indication: HYPERTENSION
     Dosage: 5 MG (5 MG, 1 IN 1 D), PER ORAL
     Route: 048
     Dates: start: 20110301, end: 20120622
  3. CLONAZEPAM [Concomitant]

REACTIONS (10)
  - CHEST PAIN [None]
  - ERUCTATION [None]
  - BACK PAIN [None]
  - BLOOD PRESSURE DECREASED [None]
  - HEART RATE DECREASED [None]
  - FATIGUE [None]
  - BLOOD POTASSIUM INCREASED [None]
  - WEIGHT DECREASED [None]
  - CARDIAC FLUTTER [None]
  - DRUG INEFFECTIVE [None]
